FAERS Safety Report 8001020-0 (Version None)
Quarter: 2011Q4

REPORT INFORMATION
  Report Type: 
  Country: None (occurrence: None)
  Receive Date: 20111222
  Receipt Date: 20110509
  Transmission Date: 20120403
  Serious: No
  Sender: FDA-Public Use
  Company Number: US-GLAXOSMITHKLINE-A0926611A

PATIENT
  Sex: Female

DRUGS (4)
  1. LISINOPRIL [Concomitant]
  2. ZOLOFT [Concomitant]
  3. FLONASE [Suspect]
     Indication: SEASONAL ALLERGY
     Dosage: 2SPR PER DAY
     Route: 045
  4. XANAX [Concomitant]

REACTIONS (1)
  - DRUG INEFFECTIVE [None]
